FAERS Safety Report 7907884-0 (Version None)
Quarter: 2011Q4

REPORT INFORMATION
  Report Type: 
  Country: None (occurrence: None)
  Receive Date: 20111110
  Receipt Date: 20111103
  Transmission Date: 20120403
  Serious: Yes (Hospitalization)
  Sender: FDA-Public Use
  Company Number: US-US-EMD SERONO, INC.-7081059

PATIENT
  Sex: Female

DRUGS (4)
  1. ACETAMINOPHEN [Concomitant]
     Indication: PREMEDICATION
  2. REBIF [Suspect]
     Indication: MULTIPLE SCLEROSIS
     Route: 058
     Dates: start: 20110622
  3. UNSPECIFIED ALLERGY PILL [Concomitant]
     Indication: SINUS DISORDER
  4. IBUPROFEN [Concomitant]
     Indication: PREMEDICATION

REACTIONS (8)
  - HEPATIC CYST [None]
  - POST PROCEDURAL COMPLICATION [None]
  - INSOMNIA [None]
  - PAIN [None]
  - INJECTION SITE PAIN [None]
  - GALLBLADDER DISORDER [None]
  - FEELING OF BODY TEMPERATURE CHANGE [None]
  - LABORATORY TEST ABNORMAL [None]
